FAERS Safety Report 5743474-6 (Version None)
Quarter: 2008Q2

REPORT INFORMATION
  Report Type: 
  Country: None (occurrence: None)
  Receive Date: 20080519
  Receipt Date: 20080519
  Transmission Date: 20081010
  Serious: No
  Sender: FDA-Public Use
  Company Number: None

PATIENT
  Sex: Female
  Weight: 95.709 kg

DRUGS (2)
  1. NECON 1/35 WATSON PHARMA [Suspect]
     Indication: CONTRACEPTION
     Dosage: ONE TABLET DAILY PO/2 MONTHS +/- HAS TAKEN
     Route: 048
     Dates: start: 20080319, end: 20080514
  2. EQUATE [Concomitant]

REACTIONS (2)
  - DYSGEUSIA [None]
  - PHARMACEUTICAL PRODUCT COMPLAINT [None]
